FAERS Safety Report 11277961 (Version 3)
Quarter: 2015Q3

REPORT INFORMATION
  Report Type: Report from Study
  Country: US (occurrence: US)
  Receive Date: 20150716
  Receipt Date: 20150921
  Transmission Date: 20151125
  Serious: Yes (Death, Hospitalization, Other)
  Sender: FDA-Public Use
  Company Number: US-ALEXION PHARMACEUTICALS INC.-A201502358

PATIENT

DRUGS (1)
  1. SOLIRIS [Suspect]
     Active Substance: ECULIZUMAB
     Indication: HAEMOLYTIC URAEMIC SYNDROME
     Route: 042

REACTIONS (11)
  - Cardiac failure congestive [Unknown]
  - Chronic kidney disease [Fatal]
  - Renal cell carcinoma [Unknown]
  - Aortic stenosis [Unknown]
  - Ascites [Unknown]
  - Haemolytic uraemic syndrome [Fatal]
  - Generalised oedema [Unknown]
  - Acute kidney injury [Fatal]
  - Condition aggravated [Fatal]
  - Pleural effusion [Unknown]
  - Factor V Leiden mutation [Unknown]
